FAERS Safety Report 6034343-5 (Version None)
Quarter: 2009Q1

REPORT INFORMATION
  Report Type: 
  Country: None (occurrence: None)
  Receive Date: 20090109
  Receipt Date: 20081113
  Transmission Date: 20090719
  Serious: Yes (Hospitalization)
  Sender: FDA-Public Use
  Company Number: DL2008520

PATIENT
  Age: 36 Year
  Sex: Female

DRUGS (3)
  1. MIFEPRISTONE TABLETS, 200 MG (DANCO LABS) [Suspect]
     Indication: ABORTION INDUCED
     Dosage: 200 MG, ORAL
     Route: 048
     Dates: start: 20080324
  2. MISOPROSTOL [Suspect]
     Dosage: 800 MCG, ORAL
     Route: 048
     Dates: start: 20080325
  3. DOXYCYCLINE [Concomitant]

REACTIONS (3)
  - ABORTION INCOMPLETE [None]
  - CHILLS [None]
  - HAEMORRHAGE [None]
